FAERS Safety Report 8031341-7 (Version None)
Quarter: 2012Q1

REPORT INFORMATION
  Report Type: 
  Country: None (occurrence: None)
  Receive Date: 20120109
  Receipt Date: 20120102
  Transmission Date: 20120608
  Serious: Yes (Other)
  Sender: FDA-Public Use
  Company Number: DK-GLAXOSMITHKLINE-B0774000A

PATIENT
  Sex: Female

DRUGS (1)
  1. LAMICTAL [Suspect]
     Indication: BIPOLAR I DISORDER
     Route: 065
     Dates: start: 20110101, end: 20111201

REACTIONS (5)
  - DYSPNOEA [None]
  - TRI-IODOTHYRONINE INCREASED [None]
  - THYROXINE INCREASED [None]
  - ARRHYTHMIA [None]
  - ATRIOVENTRICULAR BLOCK [None]
